FAERS Safety Report 5938101-9 (Version None)
Quarter: 2008Q4

REPORT INFORMATION
  Report Type: 
  Country: None (occurrence: None)
  Receive Date: 20081031
  Receipt Date: 20081027
  Transmission Date: 20090506
  Serious: Yes (Death, Hospitalization, Other)
  Sender: FDA-Public Use
  Company Number: PHBS2008TH06153

PATIENT
  Age: 63 Year
  Sex: Male

DRUGS (3)
  1. CYCLOSPORINE [Suspect]
     Indication: LUNG TRANSPLANT
  2. AZATHIOPRINE [Suspect]
     Indication: LUNG TRANSPLANT
  3. PREDNISOLONE [Suspect]
     Indication: LUNG TRANSPLANT

REACTIONS (7)
  - COMPLICATIONS OF TRANSPLANTED LUNG [None]
  - LUNG TRANSPLANT [None]
  - MYOCARDIAL INFARCTION [None]
  - OBLITERATIVE BRONCHIOLITIS [None]
  - OXYGEN SATURATION DECREASED [None]
  - RESPIRATORY TRACT INFECTION [None]
  - SPIROMETRY ABNORMAL [None]
